FAERS Safety Report 18437061 (Version 17)
Quarter: 2022Q4

REPORT INFORMATION
  Report Type: Report from Study
  Country: DE (occurrence: DE)
  Receive Date: 20201028
  Receipt Date: 20221102
  Transmission Date: 20230113
  Serious: Yes (Hospitalization, Other)
  Sender: FDA-Public Use
  Company Number: NVSC2020DE260837

PATIENT
  Sex: Female
  Weight: 49 kg

DRUGS (4)
  1. MAYZENT [Suspect]
     Active Substance: SIPONIMOD
     Indication: Secondary progressive multiple sclerosis
     Dosage: 2 MG, QD
     Route: 048
     Dates: start: 20200724, end: 20201007
  2. MAYZENT [Suspect]
     Active Substance: SIPONIMOD
     Dosage: UNK
     Route: 048
     Dates: start: 20201008, end: 20201109
  3. MAYZENT [Suspect]
     Active Substance: SIPONIMOD
     Dosage: 2 MG, QD
     Route: 048
     Dates: start: 20201110, end: 20220810
  4. MAYZENT [Suspect]
     Active Substance: SIPONIMOD
     Dosage: UNK
     Route: 048

REACTIONS (11)
  - Multiple sclerosis relapse [Recovering/Resolving]
  - Gait disturbance [Recovering/Resolving]
  - Muscular weakness [Recovering/Resolving]
  - Paresis [Unknown]
  - Hypoaesthesia [Unknown]
  - Lymphocyte count decreased [Recovered/Resolved]
  - Lymphocyte count decreased [Recovered/Resolved]
  - Lymphocyte count decreased [Not Recovered/Not Resolved]
  - Herpes zoster [Recovered/Resolved]
  - COVID-19 [Recovered/Resolved]
  - Diarrhoea [Recovering/Resolving]

NARRATIVE: CASE EVENT DATE: 20200917
